FAERS Safety Report 5714644-8 (Version None)
Quarter: 2008Q2

REPORT INFORMATION
  Report Type: 
  Country: None (occurrence: None)
  Receive Date: 20080423
  Receipt Date: 20080410
  Transmission Date: 20081010
  Serious: Yes (Other)
  Sender: FDA-Public Use
  Company Number: D0056893A

PATIENT
  Sex: Female

DRUGS (1)
  1. VIANI [Suspect]
     Indication: BRONCHIAL HYPERREACTIVITY
     Route: 055

REACTIONS (6)
  - ANGIOEDEMA [None]
  - DISABILITY [None]
  - HYPERSENSITIVITY [None]
  - OEDEMA MOUTH [None]
  - PRURITUS [None]
  - PRURITUS GENITAL [None]
